FAERS Safety Report 5453437-6 (Version None)
Quarter: 2007Q3

REPORT INFORMATION
  Report Type: 
  Country: None (occurrence: None)
  Receive Date: 20070913
  Receipt Date: 20070830
  Transmission Date: 20080115
  Serious: Yes (Death)
  Sender: FDA-Public Use
  Company Number: 018132

PATIENT
  Age: 25 Year
  Sex: Female
  Weight: 65.8 kg

DRUGS (5)
  1. FLUOXETINE [Suspect]
     Indication: DEPRESSION
     Dosage: 20 MG QD ORAL ; 40 MG QD
     Route: 048
     Dates: start: 20070201, end: 20070326
  2. FLUOXETINE [Suspect]
     Indication: DEPRESSION
     Dosage: 20 MG QD ORAL ; 40 MG QD
     Route: 048
     Dates: start: 20070326
  3. SEROQUEL [Concomitant]
  4. METHADONE HCL [Concomitant]
  5. MOTRIN [Concomitant]

REACTIONS (6)
  - ACCIDENTAL DEATH [None]
  - DRUG ABUSER [None]
  - OVERDOSE [None]
  - TOOTH INFECTION [None]
  - TOOTHACHE [None]
  - UNRESPONSIVE TO STIMULI [None]
